FAERS Safety Report 5242834-X (Version None)
Quarter: 2007Q1

REPORT INFORMATION
  Report Type: 
  Country: None (occurrence: None)
  Receive Date: 20070221
  Receipt Date: 20070209
  Transmission Date: 20070707
  Serious: Yes (Hospitalization)
  Sender: FDA-Public Use
  Company Number: US-MERCK-0702USA03297

PATIENT
  Age: 44 Year
  Sex: Male

DRUGS (2)
  1. ZOCOR [Suspect]
     Indication: HYPERCHOLESTEROLAEMIA
     Route: 048
     Dates: start: 19930101, end: 19980101
  2. ZOCOR [Suspect]
     Indication: LOW DENSITY LIPOPROTEIN INCREASED
     Route: 048
     Dates: start: 19930101, end: 19980101

REACTIONS (3)
  - LIVER DISORDER [None]
  - MUSCULOSKELETAL STIFFNESS [None]
  - URINE OUTPUT DECREASED [None]
